FAERS Safety Report 6160614-8 (Version None)
Quarter: 2009Q2

REPORT INFORMATION
  Report Type: 
  Country: None (occurrence: None)
  Receive Date: 20090416
  Receipt Date: 20090402
  Transmission Date: 20091009
  Serious: Yes (Congenital Anomaly)
  Sender: FDA-Public Use
  Company Number: 236588

PATIENT

DRUGS (2)
  1. IRINOTECAN HCL [Suspect]
     Dosage: TRANSPLACENTAL
     Route: 064
  2. VINORELBINE [Suspect]
     Dosage: TRANSPLACENTAL
     Route: 064

REACTIONS (7)
  - CLEFT LIP AND PALATE [None]
  - CONGENITAL ANOMALY [None]
  - INDUCED LABOUR [None]
  - MATERNAL DRUGS AFFECTING FOETUS [None]
  - OESOPHAGEAL ATRESIA [None]
  - PREMATURE BABY [None]
  - TRACHEO-OESOPHAGEAL FISTULA [None]
